FAERS Safety Report 12254834 (Version 1)
Quarter: 2016Q2

REPORT INFORMATION
  Report Type: Spontaneous
  Country: US (occurrence: US)
  Receive Date: 20160411
  Receipt Date: 20160411
  Transmission Date: 20160815
  Serious: Yes (Other)
  Sender: FDA-Public Use
  Company Number: US-SPECTRUM PHARMACEUTICALS, INC.-16-M-US-00070

PATIENT
  Age: 72 Year
  Sex: Female
  Weight: 79.37 kg

DRUGS (5)
  1. MARQIBO [Suspect]
     Active Substance: VINCRISTINE SULFATE
     Dosage: 3.92 MG, SINGLE
     Route: 042
     Dates: start: 20160108
  2. MARQIBO [Suspect]
     Active Substance: VINCRISTINE SULFATE
     Dosage: 3.92 MG, SINGLE
     Route: 042
     Dates: start: 20160129
  3. MARQIBO [Suspect]
     Active Substance: VINCRISTINE SULFATE
     Indication: ACUTE LYMPHOCYTIC LEUKAEMIA
     Dosage: 3.92 MG, SINGLE
     Route: 042
     Dates: start: 20151231
  4. MARQIBO [Suspect]
     Active Substance: VINCRISTINE SULFATE
     Dosage: 3.75 MG, SINGLE
     Route: 042
     Dates: start: 20160229
  5. MARQIBO [Suspect]
     Active Substance: VINCRISTINE SULFATE
     Dosage: 3.92 MG, SINGLE
     Route: 042
     Dates: start: 20160222

REACTIONS (2)
  - Vocal cord disorder [Unknown]
  - Weight decreased [Recovered/Resolved]

NARRATIVE: CASE EVENT DATE: 20160226
